FAERS Safety Report 9887316 (Version 2)
Quarter: 2014Q1

REPORT INFORMATION
  Report Type: Spontaneous
  Country: FR (occurrence: FR)
  Receive Date: 20140211
  Receipt Date: 20140331
  Transmission Date: 20141002
  Serious: Yes (Hospitalization)
  Sender: FDA-Public Use
  Company Number: FR-PFIZER INC-2014031509

PATIENT
  Age: 75 Year
  Sex: Female

DRUGS (8)
  1. SALAZOPYRINE [Suspect]
     Indication: RHEUMATOID ARTHRITIS
     Dosage: 500 MG, UNK
     Route: 048
     Dates: start: 200511, end: 200603
  2. DAFALGAN [Concomitant]
     Dosage: 500 MG, UNK
     Route: 048
  3. TOPALGIC LP [Concomitant]
     Dosage: 100 MG, 1X/DAY
     Route: 048
  4. HYDROCHLOROTHIAZIDE [Concomitant]
     Dosage: UNK
     Route: 048
  5. CORTANCYL [Concomitant]
     Dosage: UNK
     Route: 048
  6. DIFFU-K [Concomitant]
     Route: 048
  7. TEMESTA [Concomitant]
     Dosage: 1 MG, 1X/DAY
     Route: 048
  8. AMILORIDE HYDROCHLORIDE [Concomitant]
     Dosage: UNK
     Route: 048

REACTIONS (2)
  - Agranulocytosis [Recovered/Resolved]
  - Hepatocellular injury [Recovered/Resolved]
